FAERS Safety Report 14875910 (Version 4)
Quarter: 2018Q3

REPORT INFORMATION
  Report Type: Spontaneous
  Country: HU (occurrence: HU)
  Receive Date: 20180510
  Receipt Date: 20180723
  Transmission Date: 20181010
  Serious: Yes (Hospitalization, Other)
  Sender: FDA-Public Use
  Company Number: HU-SA-2018SA129301

PATIENT
  Age: 69 Year
  Sex: Female

DRUGS (17)
  1. ACETYLSALICYLIC ACID [Suspect]
     Active Substance: ASPIRIN
     Indication: HYPERTENSION
     Dosage: UNK UNK,UNK
  2. CAPTOPRIL. [Concomitant]
     Active Substance: CAPTOPRIL
     Indication: SALVAGE THERAPY
  3. AMLODIPINE BESILATE;RAMIPRIL [Suspect]
     Active Substance: AMLODIPINE\RAMIPRIL
     Indication: HYPERTENSION
     Dosage: 10 MG, QD
  4. NITROMINT [Concomitant]
     Active Substance: NITROGLYCERIN
     Indication: HYPERTENSION
     Dosage: UNK UNK,PRN
  5. RAMIPRIL. [Suspect]
     Active Substance: RAMIPRIL
     Indication: HYPERTENSION
     Dosage: UNK UNK,UNK
  6. AMLODIPINE [Suspect]
     Active Substance: AMLODIPINE BESYLATE
     Indication: HYPERTENSION
     Dosage: 1 DF, IN THE MORNING
  7. INDAPAMIDE. [Suspect]
     Active Substance: INDAPAMIDE
     Indication: HYPERTENSION
     Dosage: UNK UNK,UNK
  8. INDAPAMIDE. [Suspect]
     Active Substance: INDAPAMIDE
     Dosage: UNK
  9. DOXAZOSIN MESILATE [Suspect]
     Active Substance: DOXAZOSIN MESYLATE
     Indication: HYPERTENSION
     Dosage: UNK UNK,UNK
  10. HYDROCHLOROTHIAZIDE;LOSARTAN POTASSIUM [Suspect]
     Active Substance: HYDROCHLOROTHIAZIDE\LOSARTAN POTASSIUM
     Indication: VERTIGO
  11. ALPRAZOLAM. [Suspect]
     Active Substance: ALPRAZOLAM
     Indication: SALVAGE THERAPY
     Dosage: UNK UNK,PRN
  12. HYDROCHLOROTHIAZIDE;LOSARTAN POTASSIUM [Suspect]
     Active Substance: HYDROCHLOROTHIAZIDE\LOSARTAN POTASSIUM
     Indication: HYPERTENSION
  13. RILMENIDINE [Concomitant]
     Active Substance: RILMENIDINE
     Indication: HYPERTENSION
     Dosage: 2 DF, 2 TABLET AT NOON
  14. AMLODIPINE [Suspect]
     Active Substance: AMLODIPINE BESYLATE
     Dosage: UNK
  15. CAPTOPRIL. [Concomitant]
     Active Substance: CAPTOPRIL
     Indication: HYPERTENSION
     Dosage: UNK UNK,PRN
  16. BETAHISTINE [Concomitant]
     Active Substance: BETAHISTINE
     Indication: HYPERTENSION
     Dosage: UNK UNK,UNK
  17. ALPRAZOLAM. [Suspect]
     Active Substance: ALPRAZOLAM
     Indication: HYPERTENSION
     Dosage: UNK UNK,UNK
     Route: 065

REACTIONS (12)
  - Condition aggravated [Recovered/Resolved]
  - Heart valve incompetence [Unknown]
  - Hyperlipidaemia [Unknown]
  - Angiopathy [Unknown]
  - Drug ineffective [Unknown]
  - Blood pressure fluctuation [Recovered/Resolved]
  - Left ventricular hypertrophy [Unknown]
  - Hypotension [Recovered/Resolved]
  - Overweight [Unknown]
  - Oedema peripheral [Recovered/Resolved]
  - Renal impairment [Unknown]
  - Hypertension [Recovered/Resolved]
